FAERS Safety Report 23036333 (Version 4)
Quarter: 2023Q4

REPORT INFORMATION
  Report Type: Spontaneous
  Country: FR (occurrence: FR)
  Receive Date: 20231006
  Receipt Date: 20231120
  Transmission Date: 20240110
  Serious: Yes (Other)
  Sender: FDA-Public Use
  Company Number: FR-MLMSERVICE-20230922-4564265-1

PATIENT
  Age: 77 Year
  Sex: Male

DRUGS (3)
  1. PREDNISONE [Suspect]
     Active Substance: PREDNISONE
     Indication: Glioblastoma
     Dosage: 20 MILLIGRAM
     Route: 065
  2. TEMOZOLOMIDE [Suspect]
     Active Substance: TEMOZOLOMIDE
     Indication: Glioblastoma
     Dosage: 75 MILLIGRAM/SQ. METER, ONCE A DAY
     Route: 065
  3. TEMOZOLOMIDE [Suspect]
     Active Substance: TEMOZOLOMIDE
     Dosage: 150 MILLIGRAM/SQ. METER
     Route: 065

REACTIONS (5)
  - Cerebral nocardiosis [Recovering/Resolving]
  - Brain abscess [Recovering/Resolving]
  - Hemiparesis [Recovered/Resolved]
  - Nocardiosis [Recovered/Resolved]
  - Executive dysfunction [Recovered/Resolved]
